FAERS Safety Report 9924741 (Version 1)
Quarter: 2014Q1

REPORT INFORMATION
  Report Type: Spontaneous
  Country: BE (occurrence: None)
  Receive Date: 20140220
  Receipt Date: 20140220
  Transmission Date: 20141002
  Serious: Yes (Life-Threatening)
  Sender: FDA-Public Use
  Company Number: 2014BE00142

PATIENT
  Sex: 0

DRUGS (4)
  1. IRINOTECAN [Suspect]
     Indication: NEOPLASM MALIGNANT
     Dosage: OVER 1 H ON DAY 1
     Route: 042
  2. AFLIBERCEPT [Suspect]
     Indication: NEOPLASM MALIGNANT
     Dosage: ON DAY 1
     Route: 042
  3. LEUCOVORIN [Suspect]
     Indication: NEOPLASM MALIGNANT
     Dosage: OVER 2 HOURS ON DAY 1
  4. 5-FLUOROURACIL [Suspect]
     Indication: NEOPLASM MALIGNANT
     Dosage: 400 MG/M2 IV BOLUS THEN 600 MG/M2 INFUSION OVER 22 H ON DAYS 1 AND 2
     Route: 042

REACTIONS (1)
  - Hypertension [None]
